FAERS Safety Report 19869209 (Version 2)
Quarter: 2021Q3

REPORT INFORMATION
  Report Type: Spontaneous
  Country: EG (occurrence: EG)
  Receive Date: 20210922
  Receipt Date: 20210930
  Transmission Date: 20211014
  Serious: Yes (Hospitalization)
  Sender: FDA-Public Use
  Company Number: EG-NOVOPROD-848143

PATIENT
  Age: 71 Year
  Sex: Male
  Weight: 112 kg

DRUGS (4)
  1. MIXTARD 30 HM PENFILL [Suspect]
     Active Substance: INSULIN HUMAN
     Indication: DIABETES MELLITUS
     Dosage: 60 IU, QD (35 U MORNING ? 25 U EVENING)
     Route: 058
  2. JANUVIA [Concomitant]
     Active Substance: SITAGLIPTIN PHOSPHATE
     Indication: DIABETES MELLITUS
     Dosage: 1 TABLET IF NEEDED (STARTED 12 YEARS AGO)
     Route: 048
  3. BRUFEN [IBUPROFEN] [Concomitant]
     Active Substance: IBUPROFEN
     Indication: PRODUCT USED FOR UNKNOWN INDICATION
     Dosage: IF NEEDED
     Route: 065
  4. CHONDROGEN [Concomitant]
     Indication: BONE DISORDER
     Dosage: 1 TABLET IF NEEED
     Route: 048

REACTIONS (1)
  - Cellulitis [Recovered/Resolved]
